FAERS Safety Report 16208474 (Version 5)
Quarter: 2019Q3

REPORT INFORMATION
  Report Type: Spontaneous
  Country: JP (occurrence: JP)
  Receive Date: 20190417
  Receipt Date: 20190913
  Transmission Date: 20191004
  Serious: Yes (Death, Hospitalization)
  Sender: FDA-Public Use
  Company Number: JP-EISAI MEDICAL RESEARCH-EC-2019-051289

PATIENT
  Sex: Male
  Weight: 58 kg

DRUGS (2)
  1. LENVIMA [Suspect]
     Active Substance: LENVATINIB
     Indication: HEPATOCELLULAR CARCINOMA
     Route: 048
     Dates: start: 20181218, end: 20190701
  2. LENVIMA [Suspect]
     Active Substance: LENVATINIB
     Route: 048
     Dates: start: 20190708

REACTIONS (5)
  - Diarrhoea [Unknown]
  - Cerebral infarction [Recovered/Resolved]
  - Ascites [Recovered/Resolved]
  - Hepatic failure [Fatal]
  - Protein induced by vitamin K absence or antagonist II increased [Recovering/Resolving]

NARRATIVE: CASE EVENT DATE: 2019
